FAERS Safety Report 25785962 (Version 1)
Quarter: 2025Q3

REPORT INFORMATION
  Report Type: Spontaneous
  Country: CN (occurrence: CN)
  Receive Date: 20250910
  Receipt Date: 20250910
  Transmission Date: 20251020
  Serious: Yes (Hospitalization, Other)
  Sender: BAXTER
  Company Number: None

PATIENT
  Age: 38 Year
  Sex: Female
  Weight: 53 kg

DRUGS (4)
  1. CYCLOPHOSPHAMIDE [Suspect]
     Active Substance: CYCLOPHOSPHAMIDE
     Indication: Breast cancer female
     Dosage: 0.9G,QD
     Route: 041
     Dates: start: 20250723, end: 20250723
  2. SODIUM CHLORIDE [Suspect]
     Active Substance: SODIUM CHLORIDE
     Dosage: INJECTION,50 ML, IVGTT, D1 COMBINED WITH CYCLOPHOPSHAMIDE
     Route: 041
     Dates: start: 20250723, end: 20250723
  3. SODIUM CHLORIDE [Suspect]
     Active Substance: SODIUM CHLORIDE
     Dosage: INJECTION, 80 ML, IVGTT, D1 COMBINED WITH PACLITAXEL
     Route: 041
     Dates: start: 20250723, end: 20250723
  4. PACLITAXEL [Suspect]
     Active Substance: PACLITAXEL
     Indication: Breast cancer female
     Dosage: 0.4 G,QD
     Route: 041
     Dates: start: 20250723, end: 20250723

REACTIONS (1)
  - Liver injury [Recovering/Resolving]

NARRATIVE: CASE EVENT DATE: 20250812
